FAERS Safety Report 7033030-4 (Version None)
Quarter: 2010Q4

REPORT INFORMATION
  Report Type: 
  Country: None (occurrence: None)
  Receive Date: 20101007
  Receipt Date: 20100927
  Transmission Date: 20110411
  Serious: Yes (Other)
  Sender: FDA-Public Use
  Company Number: US-PFIZER INC-2010123255

PATIENT
  Sex: Male

DRUGS (1)
  1. ZOLOFT [Suspect]
     Indication: ANXIETY
     Dosage: 25 MG, UNK
     Dates: start: 20100901

REACTIONS (4)
  - ANXIETY [None]
  - BLOOD PRESSURE ABNORMAL [None]
  - FEELING OF RELAXATION [None]
  - HEART RATE ABNORMAL [None]
